FAERS Safety Report 8506049-1 (Version None)
Quarter: 2012Q3

REPORT INFORMATION
  Report Type: 
  Country: None (occurrence: None)
  Receive Date: 20120712
  Receipt Date: 20120709
  Transmission Date: 20120928
  Serious: Yes (Hospitalization)
  Sender: FDA-Public Use
  Company Number: US-ROCHE-1038295

PATIENT
  Sex: Female
  Weight: 71.732 kg

DRUGS (1)
  1. XELODA [Suspect]
     Indication: BREAST CANCER METASTATIC
     Dosage: 3 AM IN THE MORNING. 4 PM IN THE EVENING
     Route: 048
     Dates: start: 20111109, end: 20111221

REACTIONS (5)
  - PALMAR-PLANTAR ERYTHRODYSAESTHESIA SYNDROME [None]
  - COLITIS [None]
  - MALNUTRITION [None]
  - DEHYDRATION [None]
  - DIARRHOEA [None]
